FAERS Safety Report 5523422-4 (Version None)
Quarter: 2007Q4

REPORT INFORMATION
  Report Type: 
  Country: None (occurrence: None)
  Receive Date: 20071121
  Receipt Date: 20071112
  Transmission Date: 20080405
  Serious: Yes (Hospitalization)
  Sender: FDA-Public Use
  Company Number: US-AMGEN-STX252220

PATIENT
  Sex: Female

DRUGS (2)
  1. ENBREL [Suspect]
     Indication: RHEUMATOID ARTHRITIS
     Route: 058
     Dates: start: 20000101
  2. ARAVA [Concomitant]
     Route: 065
     Dates: start: 20060101

REACTIONS (14)
  - ARTHRALGIA [None]
  - DIVERTICULITIS [None]
  - FOOT DEFORMITY [None]
  - GAIT DISTURBANCE [None]
  - HAND DEFORMITY [None]
  - HIP FRACTURE [None]
  - HYPERKERATOSIS [None]
  - JOINT DESTRUCTION [None]
  - JOINT SWELLING [None]
  - OEDEMA PERIPHERAL [None]
  - OPEN WOUND [None]
  - PAIN IN EXTREMITY [None]
  - RHEUMATOID NODULE [None]
  - WOUND SECRETION [None]
